FAERS Safety Report 10505196 (Version 2)
Quarter: 2014Q4

REPORT INFORMATION
  Report Type: Report from Study
  Country: US (occurrence: US)
  Receive Date: 20141008
  Receipt Date: 20141008
  Transmission Date: 20150528
  Serious: Yes (Other)
  Sender: FDA-Public Use
  Company Number: US-ABBVIE-14P-163-1220741-00

PATIENT
  Sex: Female

DRUGS (3)
  1. ENTOCORT [Concomitant]
     Active Substance: BUDESONIDE
     Indication: ABDOMINAL PAIN
     Dosage: PRN
  2. HUMIRA [Suspect]
     Active Substance: ADALIMUMAB
     Indication: CROHN^S DISEASE
     Route: 065
     Dates: start: 201310
  3. HUMIRA [Suspect]
     Active Substance: ADALIMUMAB
     Route: 065

REACTIONS (3)
  - Nausea [Unknown]
  - Abortion induced [Unknown]
  - Inflammation [Unknown]
